FAERS Safety Report 18517336 (Version 1)
Quarter: 2020Q4

REPORT INFORMATION
  Report Type: Report from Study
  Country: EG (occurrence: EG)
  Receive Date: 20201118
  Receipt Date: 20201118
  Transmission Date: 20210114
  Serious: Yes (Other)
  Sender: FDA-Public Use
  Company Number: NVSC2020EG302236

PATIENT
  Age: 24 Year
  Sex: Male

DRUGS (6)
  1. GLIVEC [Suspect]
     Active Substance: IMATINIB MESYLATE
     Dosage: 6 DF, QD ( STOPPPED AFTER 1.5 OR 2 YEARS)
     Route: 065
  2. GLIVEC [Suspect]
     Active Substance: IMATINIB MESYLATE
     Dosage: 8 DF, QD
     Route: 065
  3. TASIGNA [Suspect]
     Active Substance: NILOTINIB
     Indication: CHRONIC MYELOID LEUKAEMIA
     Dosage: 4 DF, QD (STARTED 2 OR 3 YEARS AGO)
     Route: 065
  4. GLIVEC [Suspect]
     Active Substance: IMATINIB MESYLATE
     Indication: CHRONIC MYELOID LEUKAEMIA
     Dosage: 2 DF, QD (STARTED 11 YEARS AGO OR 2011 (NO EXACT TIME))
     Route: 065
  5. TASIGNA [Suspect]
     Active Substance: NILOTINIB
     Dosage: 3 DF, QD
     Route: 065
  6. SPRYCEL [Suspect]
     Active Substance: DASATINIB
     Indication: CHRONIC MYELOID LEUKAEMIA
     Dosage: 2 DF, QD (STARTED 9 YEARS AGO AND STOPPED 2 OR 3 YEARS AGO)
     Route: 065

REACTIONS (3)
  - Cytogenetic analysis abnormal [Recovered/Resolved]
  - Product dose omission issue [Recovered/Resolved]
  - Decreased immune responsiveness [Recovered/Resolved]
